FAERS Safety Report 12431656 (Version 1)
Quarter: 2016Q2

REPORT INFORMATION
  Report Type: Spontaneous
  Country: US (occurrence: None)
  Receive Date: 20160602
  Receipt Date: 20160602
  Transmission Date: 20160815
  Serious: Yes (Other)
  Sender: FDA-Public Use
  Company Number: None

PATIENT
  Age: 84 Year
  Sex: Male

DRUGS (1)
  1. NINLARO [Suspect]
     Active Substance: IXAZOMIB
     Indication: PLASMA CELL MYELOMA
     Dosage: 09/05/2016 TO CURRENT 2.3 CAPSULES 1 CAP WEEKLY ORAL
     Route: 048
     Dates: start: 20160509

REACTIONS (1)
  - Rash [None]

NARRATIVE: CASE EVENT DATE: 20160509
